FAERS Safety Report 25860152 (Version 1)
Quarter: 2025Q3

REPORT INFORMATION
  Report Type: Spontaneous
  Country: US (occurrence: None)
  Receive Date: 20250927
  Receipt Date: 20250927
  Transmission Date: 20251020
  Serious: Yes (Disabling)
  Sender: FDA-CTU
  Company Number: None

PATIENT
  Age: 66 Year
  Sex: Female
  Weight: 56.25 kg

DRUGS (9)
  1. RECLAST [Suspect]
     Active Substance: ZOLEDRONIC ACID
     Indication: Osteoporosis
     Dates: start: 20250918, end: 20250918
  2. Crestor 20 mg/day Inclisiran (2x/year injection) [Concomitant]
  3. Spironolactone 100mg (for skin/hair) [Concomitant]
  4. Meloxicam 15 mg (for arthritis and tendon tears) [Concomitant]
  5. Prilosec 40mg (for ulcers caused by Meloxicam) [Concomitant]
  6. Gabapentin 300mg (for sleep) [Concomitant]
  7. Melatonin 600 mcg for sleep [Concomitant]
  8. Iron 65mg [Concomitant]
  9. Calcium 1,000 mg [Concomitant]

REACTIONS (14)
  - Influenza like illness [None]
  - Pain [None]
  - Arthralgia [None]
  - Joint swelling [None]
  - Gait disturbance [None]
  - Psoriatic arthropathy [None]
  - Arthralgia [None]
  - Walking aid user [None]
  - Ligament sprain [None]
  - Joint swelling [None]
  - Peripheral swelling [None]
  - Peripheral swelling [None]
  - Arthralgia [None]
  - Loss of personal independence in daily activities [None]

NARRATIVE: CASE EVENT DATE: 20250923
